FAERS Safety Report 8473478-4 (Version None)
Quarter: 2012Q2

REPORT INFORMATION
  Report Type: 
  Country: None (occurrence: None)
  Receive Date: 20120625
  Receipt Date: 20120625
  Transmission Date: 20120825
  Serious: Yes (Other)
  Sender: FDA-Public Use
  Company Number: None

PATIENT
  Sex: Male
  Weight: 88.4514 kg

DRUGS (4)
  1. HYDROCODONE BITARTRATE AND ACETAMINOPHEN [Suspect]
     Indication: MUSCLE ATROPHY
     Dosage: 1/2-1 TABLET TID-QID PO
     Route: 048
     Dates: start: 20030424, end: 20120622
  2. HYDROCODONE BITARTRATE AND ACETAMINOPHEN [Suspect]
     Indication: NECK PAIN
     Dosage: 1/2-1 TABLET TID-QID PO
     Route: 048
     Dates: start: 20030424, end: 20120622
  3. LINISOPRIL [Concomitant]
  4. LEXAPRO [Concomitant]

REACTIONS (10)
  - MUSCLE ATROPHY [None]
  - PRODUCT CONTAMINATION [None]
  - DYSPEPSIA [None]
  - BURNING SENSATION [None]
  - TONGUE DRY [None]
  - SEDATION [None]
  - OVERDOSE [None]
  - DRY EYE [None]
  - ANXIETY [None]
  - DYSGEUSIA [None]
